FAERS Safety Report 9355225 (Version 3)
Quarter: 2013Q3

REPORT INFORMATION
  Report Type: Spontaneous
  Country: GB (occurrence: GB)
  Receive Date: 20130619
  Receipt Date: 20130820
  Transmission Date: 20140515
  Serious: Yes (Hospitalization)
  Sender: FDA-Public Use
  Company Number: PHFR2013GB003464

PATIENT
  Sex: 0

DRUGS (1)
  1. NEORAL [Suspect]
     Indication: HEART TRANSPLANT

REACTIONS (2)
  - Cardiac disorder [Unknown]
  - Oral administration complication [Unknown]
